FAERS Safety Report 5148859-7 (Version None)
Quarter: 2006Q4

REPORT INFORMATION
  Report Type: 
  Country: None (occurrence: None)
  Receive Date: 20061108
  Receipt Date: 20061025
  Transmission Date: 20070319
  Serious: Yes (Other)
  Sender: FDA-Public Use
  Company Number: 15060

PATIENT
  Age: 43 Year
  Sex: Male

DRUGS (10)
  1. FLUOROURACIL [Suspect]
     Indication: COLORECTAL CANCER
     Dates: start: 20040701
  2. FLUOROURACIL [Suspect]
     Indication: COLORECTAL CANCER
     Dates: start: 20050701
  3. FLUOROURACIL [Suspect]
     Indication: COLORECTAL CANCER
     Dates: start: 20060801
  4. LEUCOVORIN CALCIUM [Suspect]
     Indication: COLORECTAL CANCER
     Dates: start: 20040701
  5. LEUCOVORIN CALCIUM [Suspect]
     Indication: COLORECTAL CANCER
     Dates: start: 20050701
  6. LEUCOVORIN CALCIUM [Suspect]
     Indication: COLORECTAL CANCER
     Dates: start: 20060801
  7. ELOXATIN [Suspect]
     Indication: COLORECTAL CANCER
     Dosage: 85 MG/M2 IV
     Route: 042
     Dates: start: 20040701
  8. ELOXATIN [Suspect]
     Indication: COLORECTAL CANCER
     Dates: start: 20060801
  9. CALCIUM [Concomitant]
  10. MAGNESIUM [Concomitant]

REACTIONS (5)
  - ELECTRIC SHOCK [None]
  - LIVER OPERATION [None]
  - NEURALGIA [None]
  - NEUROPATHY [None]
  - NEUROPATHY PERIPHERAL [None]
